FAERS Safety Report 8936697 (Version 2)
Quarter: 2013Q1

REPORT INFORMATION
  Report Type: Spontaneous
  Country: US (occurrence: US)
  Receive Date: 20121130
  Receipt Date: 20130304
  Transmission Date: 20140127
  Serious: Yes (Other)
  Sender: FDA-Public Use
  Company Number: US-JNJFOC-20121113650

PATIENT
  Age: 19 Year
  Sex: Female

DRUGS (1)
  1. BENADRYL ALLERGY DYE-FREE [Suspect]
     Indication: RASH
     Dosage: 2 TABLETS EVERY 4 TO 6 HOURS
     Route: 048
     Dates: start: 20121114, end: 20121120

REACTIONS (3)
  - Foetal death [Unknown]
  - Exposure during pregnancy [Recovered/Resolved]
  - Off label use [Unknown]
